FAERS Safety Report 8377448-6 (Version None)
Quarter: 2012Q2

REPORT INFORMATION
  Report Type: 
  Country: None (occurrence: None)
  Receive Date: 20120522
  Receipt Date: 20110829
  Transmission Date: 20120825
  Serious: No
  Sender: FDA-Public Use
  Company Number: US-ASTRAZENECA-2011SE52138

PATIENT
  Sex: Female
  Weight: 81.6 kg

DRUGS (12)
  1. LEVOTHYROXINE SODIUM [Concomitant]
  2. ASCORBIC ACID [Concomitant]
  3. NAPROXEN [Concomitant]
  4. MULTI-VITAMINS [Concomitant]
  5. PREMARIN [Concomitant]
  6. ALLEGRA [Concomitant]
  7. PRILOSEC [Suspect]
     Route: 048
  8. TYLENOL [Concomitant]
  9. SINGULAIR [Concomitant]
  10. CALCIUM [Concomitant]
  11. TRAMADOL HYDROCHLORIDE [Concomitant]
  12. NEXIUM [Concomitant]

REACTIONS (3)
  - DRUG INEFFECTIVE [None]
  - HIATUS HERNIA [None]
  - DYSPHAGIA [None]
